FAERS Safety Report 4488558-8 (Version None)
Quarter: 2004Q4

REPORT INFORMATION
  Report Type: 
  Country: None (occurrence: None)
  Receive Date: 20041028
  Receipt Date: 20041028
  Transmission Date: 20050328
  Serious: Yes (Other)
  Sender: FDA-Public Use
  Company Number: None

PATIENT
  Age: 60 Year
  Sex: Male
  Weight: 92.9 kg

DRUGS (8)
  1. DOCETAXEL [Suspect]
     Indication: BLADDER CANCER
     Dosage: 36 MG/M2, D1,8,15, IV
     Route: 042
     Dates: start: 20040910
  2. CAPECITABINE [Suspect]
     Indication: BLADDER CANCER
     Dosage: 1250 MG/M2 D5-18, PO
     Route: 048
     Dates: start: 20040914
  3. COMPAZINE [Concomitant]
  4. DECADRON [Concomitant]
  5. BENADRYL [Concomitant]
  6. ZOLOFT [Concomitant]
  7. ZETIA [Concomitant]
  8. SYNTHROID [Concomitant]

REACTIONS (3)
  - BLISTER [None]
  - HAEMORRHAGE [None]
  - MOUTH ULCERATION [None]
